FAERS Safety Report 12919919 (Version 1)
Quarter: 2016Q4

REPORT INFORMATION
  Report Type: Spontaneous
  Country: DE (occurrence: DE)
  Receive Date: 20161107
  Receipt Date: 20161107
  Transmission Date: 20170207
  Serious: Yes (Other)
  Sender: FDA-Public Use
  Company Number: DE-BAYER-2016-210844

PATIENT
  Age: 49 Year
  Sex: Female
  Weight: 63 kg

DRUGS (1)
  1. MIRENA [Suspect]
     Active Substance: LEVONORGESTREL
     Indication: CONTRACEPTIVE IMPLANT
     Dosage: 20 MCG/24HR, CONT
     Route: 015
     Dates: start: 2009

REACTIONS (45)
  - Head discomfort [Unknown]
  - Panic attack [Unknown]
  - Hypersensitivity [Unknown]
  - Nausea [Unknown]
  - Tenderness [Unknown]
  - Blood pressure fluctuation [Unknown]
  - Burnout syndrome [Unknown]
  - Abdominal pain upper [Unknown]
  - Temperature intolerance [Unknown]
  - Anxiety [Unknown]
  - Tachyphrenia [Unknown]
  - Throat tightness [Unknown]
  - Nervousness [Unknown]
  - Dry skin [Unknown]
  - Syncope [Unknown]
  - Headache [Unknown]
  - Memory impairment [Unknown]
  - Joint stiffness [Unknown]
  - Arthralgia [Unknown]
  - Social avoidant behaviour [Unknown]
  - Weight bearing difficulty [Unknown]
  - Pruritus [Unknown]
  - Back pain [Unknown]
  - Hypoacusis [Unknown]
  - Restlessness [Unknown]
  - Hirsutism [Unknown]
  - Fatigue [Unknown]
  - Dizziness [Unknown]
  - Tinnitus [Unknown]
  - Musculoskeletal pain [Unknown]
  - Skin mass [Unknown]
  - Constipation [Unknown]
  - Breast engorgement [Unknown]
  - Cardiovascular disorder [Unknown]
  - Eczema [Unknown]
  - Depression [Unknown]
  - Breast cyst [Unknown]
  - Sleep disorder [Unknown]
  - Hyperhidrosis [Unknown]
  - Disturbance in attention [Unknown]
  - Arrhythmia [Unknown]
  - Visual acuity reduced [Unknown]
  - Hypothyroidism [Unknown]
  - Skin odour abnormal [Unknown]
  - Migraine [Unknown]

NARRATIVE: CASE EVENT DATE: 2009
